FAERS Safety Report 7001672-8 (Version None)
Quarter: 2010Q3

REPORT INFORMATION
  Report Type: 
  Country: None (occurrence: None)
  Receive Date: 20100920
  Receipt Date: 20100908
  Transmission Date: 20110219
  Serious: Yes (Life-Threatening, Hospitalization)
  Sender: FDA-Public Use
  Company Number: PL-PFIZER INC-2007098800

PATIENT
  Age: 73 Year
  Sex: Male
  Weight: 67 kg

DRUGS (10)
  1. SUNITINIB MALATE [Suspect]
     Indication: METASTATIC RENAL CELL CARCINOMA
     Dosage: 25 MG, 1X/DAY
     Route: 048
     Dates: start: 20051220, end: 20070810
  2. OMNIC [Concomitant]
     Dosage: UNK
     Route: 048
     Dates: start: 20050101, end: 20070814
  3. FUROSEMID [Concomitant]
     Dosage: UNK
     Dates: start: 20050101, end: 20070909
  4. MILURIT [Concomitant]
     Dosage: UNK
     Route: 048
     Dates: start: 20050101, end: 20070830
  5. DIAPREL [Concomitant]
     Dosage: UNK
     Route: 048
     Dates: start: 20050101, end: 20070830
  6. METOCARD [Concomitant]
     Dosage: UNK
     Route: 048
     Dates: start: 20050101, end: 20070902
  7. HEMOFER [Concomitant]
     Dosage: UNK
     Route: 048
     Dates: start: 20070101, end: 20070816
  8. KALDYUM [Concomitant]
     Dosage: UNK
     Route: 048
     Dates: start: 20050101, end: 20070830
  9. SPIRONOL [Concomitant]
     Dosage: UNK
     Route: 048
     Dates: start: 20050101, end: 20070830
  10. LOTENSIN [Concomitant]
     Dosage: UNK
     Route: 048
     Dates: start: 20070101, end: 20070902

REACTIONS (3)
  - ANAEMIA [None]
  - CORONARY ARTERY DISEASE [None]
  - RENAL FAILURE [None]
